FAERS Safety Report 9733900 (Version 2)
Quarter: 2014Q1

REPORT INFORMATION
  Report Type: Spontaneous
  Country: US (occurrence: US)
  Receive Date: 20131205
  Receipt Date: 20140312
  Transmission Date: 20141002
  Serious: No
  Sender: FDA-Public Use
  Company Number: US-009507513-1311USA011380

PATIENT
  Sex: Female
  Weight: 82.54 kg

DRUGS (2)
  1. MIRALAX [Suspect]
     Indication: CONSTIPATION
     Dosage: UNK, BID
     Route: 048
     Dates: start: 20131004, end: 20131104
  2. OMEGA-3 MARINE TRIGLYCERIDES [Concomitant]
     Dosage: UNK, UNKNOWN

REACTIONS (4)
  - Inappropriate schedule of drug administration [Unknown]
  - Incorrect drug administration duration [Unknown]
  - Overdose [Unknown]
  - Drug ineffective [Unknown]
